FAERS Safety Report 4414260-4 (Version None)
Quarter: 2004Q3

REPORT INFORMATION
  Report Type: 
  Country: None (occurrence: None)
  Receive Date: 20040729
  Receipt Date: 20040709
  Transmission Date: 20050211
  Serious: Yes (Life-Threatening)
  Sender: FDA-Public Use
  Company Number: 2004224699JP

PATIENT
  Age: 69 Year
  Sex: Male

DRUGS (3)
  1. CAMPTOSAR [Suspect]
     Dosage: SEE IMAGE
     Route: 041
     Dates: start: 20040427, end: 20040617
  2. CAMPTOSAR [Suspect]
     Dosage: SEE IMAGE
     Route: 041
     Dates: start: 20040624, end: 20040624
  3. TS-1 (TEGAFUR, GIMERACIL, OTERACIL POTASSIUM) [Concomitant]

REACTIONS (2)
  - PNEUMOCYSTIS CARINII PNEUMONIA [None]
  - PNEUMONITIS [None]
